FAERS Safety Report 20799459 (Version 8)
Quarter: 2024Q1

REPORT INFORMATION
  Report Type: Report from Study
  Country: US (occurrence: US)
  Receive Date: 20220508
  Receipt Date: 20240207
  Transmission Date: 20240410
  Serious: Yes (Other)
  Sender: FDA-Public Use
  Company Number: US-ABBVIE-22K-163-4383816-00

PATIENT
  Sex: Male
  Weight: 74 kg

DRUGS (15)
  1. HUMIRA [Suspect]
     Active Substance: ADALIMUMAB
     Indication: Rheumatoid arthritis
     Dosage: FORM STRENGTH: 40 MILLIGRAM?CITRATE FREE
     Route: 058
     Dates: start: 2017
  2. HUMIRA [Suspect]
     Active Substance: ADALIMUMAB
     Dosage: FORM STRENGTH 40 MILLIGRAMS?CITRATE FREE
     Route: 058
     Dates: start: 20230125
  3. HUMIRA [Suspect]
     Active Substance: ADALIMUMAB
     Indication: Rheumatoid arthritis
     Dosage: CITRATE FREE
     Route: 058
  4. IRON [Concomitant]
     Active Substance: IRON
     Indication: Anaemia
     Route: 065
  5. LOVASTATIN [Concomitant]
     Active Substance: LOVASTATIN
     Indication: Blood cholesterol
     Route: 058
  6. TRAMADOL [Concomitant]
     Active Substance: TRAMADOL\TRAMADOL HYDROCHLORIDE
     Indication: Rheumatoid arthritis
     Dosage: TIME INTERVAL: AS NECESSARY
     Route: 065
  7. VITAMIN D3 [Concomitant]
     Active Substance: CHOLECALCIFEROL
     Indication: Vitamin supplementation
     Route: 065
  8. VITAMINS [Concomitant]
     Active Substance: VITAMINS
     Indication: Supplementation therapy
     Route: 065
  9. TEMAZEPAM [Concomitant]
     Active Substance: TEMAZEPAM
     Indication: Depression
     Route: 065
  10. LISINOPRIL [Suspect]
     Active Substance: LISINOPRIL
     Indication: Hypertension
     Route: 065
  11. PAROXETINE [Concomitant]
     Active Substance: PAROXETINE
     Indication: Sleep disorder therapy
     Route: 065
  12. MODERNA COVID-19 VACCINE [Concomitant]
     Active Substance: ELASOMERAN
     Indication: COVID-19 immunisation
     Dosage: MODERNA SECOND DOSE,  ONE IN ONCE
     Route: 030
     Dates: start: 2021, end: 2021
  13. MODERNA COVID-19 VACCINE [Concomitant]
     Active Substance: ELASOMERAN
     Indication: COVID-19 immunisation
     Dosage: MODERNA SECOND BOOSTER,  ONE IN ONCE
     Route: 030
     Dates: start: 2022, end: 2022
  14. MODERNA COVID-19 VACCINE [Concomitant]
     Active Substance: ELASOMERAN
     Indication: COVID-19 immunisation
     Dosage: MODERNA FIRST BOOSTER DOSE, ONE IN ONCE
     Route: 030
     Dates: start: 2021, end: 2021
  15. MODERNA COVID-19 VACCINE [Concomitant]
     Active Substance: ELASOMERAN
     Indication: COVID-19 immunisation
     Dosage: MODERNA FIRST DOSE,  ONE IN ONCE
     Route: 030
     Dates: start: 2021, end: 2021

REACTIONS (16)
  - Glaucoma [Not Recovered/Not Resolved]
  - Vision blurred [Not Recovered/Not Resolved]
  - Macular degeneration [Recovered/Resolved]
  - Macular degeneration [Not Recovered/Not Resolved]
  - Visual field defect [Not Recovered/Not Resolved]
  - Tendon rupture [Not Recovered/Not Resolved]
  - Brachial artery entrapment syndrome [Not Recovered/Not Resolved]
  - Osteoarthritis [Unknown]
  - Intraocular lens implant [Recovered/Resolved]
  - Macular degeneration [Not Recovered/Not Resolved]
  - Intraocular lens implant [Unknown]
  - Visual impairment [Not Recovered/Not Resolved]
  - Adverse drug reaction [Unknown]
  - Pyrexia [Unknown]
  - Arthropod bite [Unknown]
  - Unevaluable event [Unknown]

NARRATIVE: CASE EVENT DATE: 20190101
